FAERS Safety Report 15632550 (Version 1)
Quarter: 2018Q4

REPORT INFORMATION
  Report Type: Other
  Country: JP (occurrence: JP)
  Receive Date: 20181119
  Receipt Date: 20181119
  Transmission Date: 20190205
  Serious: Yes (Other)
  Sender: FDA-Public Use
  Company Number: JP-ACTELION-A-CH2018-181832

PATIENT
  Age: 21 Year
  Sex: Female

DRUGS (6)
  1. OPSUMIT [Suspect]
     Active Substance: MACITENTAN
     Indication: PULMONARY ARTERIAL HYPERTENSION
     Route: 048
  2. TREPROSTINIL. [Concomitant]
     Active Substance: TREPROSTINIL
     Route: 042
  3. DOBUTAMINE [Concomitant]
     Active Substance: DOBUTAMINE\DOBUTAMINE HYDROCHLORIDE
  4. TADALAFIL. [Concomitant]
     Active Substance: TADALAFIL
     Route: 048
  5. TREPROSTINIL. [Concomitant]
     Active Substance: TREPROSTINIL
     Dosage: 40 NG, UNK
     Route: 042
  6. PREDNISOLONE. [Concomitant]
     Active Substance: PREDNISOLONE

REACTIONS (4)
  - Cardio-respiratory arrest [Recovering/Resolving]
  - Plasmapheresis [Unknown]
  - Thrombotic microangiopathy [Unknown]
  - Platelet count decreased [Unknown]
